FAERS Safety Report 10246203 (Version 1)
Quarter: 2014Q2

REPORT INFORMATION
  Report Type: Spontaneous
  Country: US (occurrence: US)
  Receive Date: 20140619
  Receipt Date: 20140619
  Transmission Date: 20141212
  Serious: Yes (Hospitalization)
  Sender: FDA-Public Use
  Company Number: US-BAYER-2014-089372

PATIENT
  Age: 38 Year
  Sex: Female
  Weight: 122.45 kg

DRUGS (11)
  1. YASMIN [Suspect]
  2. OCELLA [Suspect]
  3. CEFUROXIME AXETIL [Concomitant]
     Dosage: 500 MG, UNK
     Route: 048
     Dates: start: 20080819
  4. PATANOL [Concomitant]
     Dosage: 0.1 %, UNK
     Route: 061
     Dates: start: 20080830, end: 20080919
  5. METOPROLOL [Concomitant]
     Dosage: 100 MG, UNK
     Route: 048
     Dates: start: 20080805, end: 20081004
  6. BENICAR [Concomitant]
     Dosage: 20-12.5 MG
     Route: 048
     Dates: start: 20080805, end: 20081004
  7. BENICAR [Concomitant]
     Dosage: UNK
     Route: 048
     Dates: start: 20081018
  8. DOXYCYCLINE [Concomitant]
     Dosage: 100 MG, UNK
     Route: 048
     Dates: start: 20081007
  9. DOXYCYCLINE [Concomitant]
     Dosage: UNK
     Route: 048
     Dates: start: 20081018
  10. MOMETASONE FUROATE [Concomitant]
     Dosage: 0.1 %, UNK
     Route: 061
     Dates: start: 20081007
  11. TOPROL [Concomitant]
     Dosage: UNK
     Route: 048
     Dates: start: 20081018

REACTIONS (1)
  - Pulmonary embolism [None]
